FAERS Safety Report 15074613 (Version 1)
Quarter: 2018Q3

REPORT INFORMATION
  Report Type: Spontaneous
  Country: US (occurrence: US)
  Receive Date: 20180627
  Receipt Date: 20180627
  Transmission Date: 20181010
  Serious: No
  Sender: FDA-Public Use
  Company Number: US-SAOL THERAPEUTICS-2018SAO00787

PATIENT
  Age: 26 Year
  Sex: Female

DRUGS (4)
  1. KIT COMPONENTS (DEVICE) [Suspect]
     Active Substance: DEVICE
  2. LIORESAL [Suspect]
     Active Substance: BACLOFEN
     Indication: MUSCLE SPASTICITY
     Dosage: 424.8 ?G, \DAY
  3. LIORESAL [Suspect]
     Active Substance: BACLOFEN
     Indication: QUADRIPARESIS
     Dosage: 424 ?G, \DAY
     Route: 037
  4. LIORESAL [Suspect]
     Active Substance: BACLOFEN
     Indication: HEAD INJURY

REACTIONS (2)
  - Needle issue [Not Recovered/Not Resolved]
  - Haemorrhage [Recovered/Resolved]

NARRATIVE: CASE EVENT DATE: 20180521
